FAERS Safety Report 20867035 (Version 1)
Quarter: 2022Q2

REPORT INFORMATION
  Report Type: Spontaneous
  Country: FR (occurrence: FR)
  Receive Date: 20220524
  Receipt Date: 20220524
  Transmission Date: 20220720
  Serious: Yes (Other)
  Sender: FDA-Public Use
  Company Number: FR-PFM-2022-03978

PATIENT
  Age: 20 Year
  Sex: Male

DRUGS (2)
  1. DOXYCYCLINE [Interacting]
     Active Substance: DOXYCYCLINE
     Indication: Product used for unknown indication
     Dosage: UNK
     Route: 065
  2. ISOTRETINOIN [Interacting]
     Active Substance: ISOTRETINOIN
     Indication: Product used for unknown indication
     Dosage: UNK
     Route: 065
     Dates: start: 20211115

REACTIONS (3)
  - Contraindicated product prescribed [Unknown]
  - Labelled drug-drug interaction medication error [Unknown]
  - Hepatic cytolysis [Unknown]
